FAERS Safety Report 6303483-5 (Version None)
Quarter: 2009Q3

REPORT INFORMATION
  Report Type: 
  Country: None (occurrence: None)
  Receive Date: 20090810
  Receipt Date: 20090729
  Transmission Date: 20100115
  Serious: Yes (Hospitalization, Other)
  Sender: FDA-Public Use
  Company Number: PHEH2009US08019

PATIENT
  Sex: Male
  Weight: 77.098 kg

DRUGS (2)
  1. CLOZAPINE [Suspect]
     Indication: SCHIZOAFFECTIVE DISORDER
     Dosage: 300 MG, QD
     Route: 048
     Dates: start: 20090126, end: 20090721
  2. ZYPREXA [Concomitant]
     Indication: SCHIZOPHRENIA
     Dosage: 15 MG, QD
     Dates: start: 20090426

REACTIONS (4)
  - BLOOD THYROID STIMULATING HORMONE INCREASED [None]
  - CHOKING SENSATION [None]
  - MENTAL IMPAIRMENT [None]
  - SALIVARY HYPERSECRETION [None]
